FAERS Safety Report 24967690 (Version 2)
Quarter: 2025Q1

REPORT INFORMATION
  Report Type: Spontaneous
  Country: US (occurrence: US)
  Receive Date: 20250214
  Receipt Date: 20250228
  Transmission Date: 20250409
  Serious: No
  Sender: ROCHE
  Company Number: US-ROCHE-10000203510

PATIENT
  Age: 50 Year
  Sex: Female
  Weight: 95.25 kg

DRUGS (25)
  1. MYCOPHENOLATE MOFETIL [Suspect]
     Active Substance: MYCOPHENOLATE MOFETIL
     Indication: Immune thrombocytopenia
     Dosage: WEEK 11-12, 11 DAYS
     Route: 048
     Dates: start: 20230218, end: 20230228
  2. AMOXICILLIN [Concomitant]
     Active Substance: AMOXICILLIN
  3. CEPHALEXIN [Concomitant]
     Active Substance: CEPHALEXIN
  4. DEXAMETHASONE [Concomitant]
     Active Substance: DEXAMETHASONE
     Route: 042
     Dates: start: 20221207, end: 20221210
  5. DEXAMETHASONE [Concomitant]
     Active Substance: DEXAMETHASONE
     Route: 042
     Dates: start: 20230215
  6. DEXAMETHASONE [Concomitant]
     Active Substance: DEXAMETHASONE
     Route: 042
     Dates: start: 20221213
  7. DEXAMETHASONE [Concomitant]
     Active Substance: DEXAMETHASONE
     Route: 042
     Dates: start: 20221220, end: 20221223
  8. DEXAMETHASONE [Concomitant]
     Active Substance: DEXAMETHASONE
     Route: 042
     Dates: start: 20221227
  9. DEXAMETHASONE [Concomitant]
     Active Substance: DEXAMETHASONE
     Route: 042
     Dates: start: 20230103
  10. DEXAMETHASONE [Concomitant]
     Active Substance: DEXAMETHASONE
     Route: 042
     Dates: start: 20230222
  11. DEXAMETHASONE [Concomitant]
     Active Substance: DEXAMETHASONE
     Route: 042
     Dates: start: 20230301
  12. DEXAMETHASONE [Concomitant]
     Active Substance: DEXAMETHASONE
     Route: 042
     Dates: start: 20230309
  13. RITUXIMAB [Concomitant]
     Active Substance: RITUXIMAB
     Dosage: WEEKLY 4 TIMES, WEEK 1-4
     Route: 042
  14. ELTROMBOPAG [Concomitant]
     Active Substance: ELTROMBOPAG
     Dosage: WEEK 2-4, 14 DAYS
     Route: 048
  15. AVATROMBOPAG [Concomitant]
     Active Substance: AVATROMBOPAG
  16. IRON SUCROSE [Concomitant]
     Active Substance: IRON SUCROSE
  17. EPOETIN ALFA [Concomitant]
     Active Substance: ERYTHROPOIETIN
     Dosage: WEEK 4-8 14 DAYS
  18. EPOETIN ALFA [Concomitant]
     Active Substance: ERYTHROPOIETIN
     Dosage: WEEK 4-8, 8 DAYS
  19. TRANEXAMIC ACID [Concomitant]
     Active Substance: TRANEXAMIC ACID
  20. FOSTAMATINIB [Concomitant]
     Active Substance: FOSTAMATINIB
     Dosage: WEEK 7-14, 9 DAYS
     Route: 048
  21. FOSTAMATINIB [Concomitant]
     Active Substance: FOSTAMATINIB
     Dosage: WEEK 7-14, 16DAYS
     Route: 048
  22. FOSTAMATINIB [Concomitant]
     Active Substance: FOSTAMATINIB
     Dosage: WEEK 7-14, 37DAYS
     Route: 048
  23. DARATUMUMAB [Concomitant]
     Active Substance: DARATUMUMAB
     Dosage: 4TIMES WEEK 11-14
     Route: 042
  24. HEPARIN [Concomitant]
     Active Substance: HEPARIN SODIUM
     Route: 042
  25. APIXABAN [Concomitant]
     Active Substance: APIXABAN

REACTIONS (1)
  - Leukopenia [Recovered/Resolved]

NARRATIVE: CASE EVENT DATE: 20230227
